FAERS Safety Report 8687827 (Version 2)
Quarter: 2012Q4

REPORT INFORMATION
  Report Type: 
  Country: US (occurrence: US)
  Receive Date: 20120727
  Receipt Date: 20121129
  Transmission Date: 20130627
  Serious: Yes (Other)
  Sender: FDA-Public Use
  Company Number: US-ASTRAZENECA-2012SE49635

PATIENT
  Age: 852 Month
  Sex: Male
  Weight: 99.8 kg

DRUGS (2)
  1. BRILINTA [Suspect]
     Route: 048
  2. SYMBICORT [Suspect]
     Indication: CHRONIC OBSTRUCTIVE PULMONARY DISEASE
     Dosage: 160/4.5 2 PUFFS BID
     Route: 055
     Dates: start: 201210, end: 20121119

REACTIONS (6)
  - Haemorrhage [Unknown]
  - Epistaxis [Unknown]
  - Dizziness [Unknown]
  - Somnolence [Unknown]
  - Eye pain [Not Recovered/Not Resolved]
  - Hordeolum [Not Recovered/Not Resolved]
